FAERS Safety Report 17072106 (Version 1)
Quarter: 2019Q4

REPORT INFORMATION
  Report Type: Spontaneous
  Country: US (occurrence: US)
  Receive Date: 20191125
  Receipt Date: 20191125
  Transmission Date: 20200122
  Serious: No
  Sender: FDA-Public Use
  Company Number: US-BAYER-2019-212454

PATIENT
  Age: 79 Year
  Sex: Female
  Weight: 39 kg

DRUGS (2)
  1. MIRALAX [Suspect]
     Active Substance: POLYETHYLENE GLYCOL 3350
     Indication: GENERAL PHYSICAL CONDITION
     Dosage: UNK
  2. MIRALAX [Suspect]
     Active Substance: POLYETHYLENE GLYCOL 3350
     Indication: GENERAL PHYSICAL CONDITION
     Dosage: 2 DF, QD
     Route: 048
     Dates: start: 20191119, end: 20191122

REACTIONS (3)
  - Off label use [Unknown]
  - Incorrect product administration duration [None]
  - Product use in unapproved indication [Unknown]
